FAERS Safety Report 24264398 (Version 1)
Quarter: 2024Q3

REPORT INFORMATION
  Report Type: Spontaneous
  Country: GB (occurrence: None)
  Receive Date: 20240829
  Receipt Date: 20240829
  Transmission Date: 20241017
  Serious: Yes (Disabling, Other)
  Sender: ASTRAZENECA
  Company Number: 2024A190653

PATIENT
  Age: 82 Year
  Sex: Male
  Weight: 83 kg

DRUGS (18)
  1. ROSUVASTATIN [Suspect]
     Active Substance: ROSUVASTATIN\ROSUVASTATIN CALCIUM
     Dosage: EACH NIGHT
     Dates: start: 20230612, end: 20240624
  2. METHYLPREDNISOLONE [Concomitant]
     Active Substance: METHYLPREDNISOLONE
     Dates: start: 20240723, end: 20240724
  3. LIDOCAINE [Concomitant]
     Active Substance: LIDOCAINE
     Dosage: USE AS DIRECTED
     Dates: start: 20240723, end: 20240724
  4. AMLODIPINE [Concomitant]
     Active Substance: AMLODIPINE BESYLATE
     Dosage: EACH MORNING
     Dates: start: 20230612
  5. ASPIRIN [Concomitant]
     Active Substance: ASPIRIN
     Dosage: IN THE MORNING
     Dates: start: 20230612, end: 20240607
  6. BECLOMETHASONE DIPROPIONATE [Concomitant]
     Active Substance: BECLOMETHASONE DIPROPIONATE
     Dosage: PUFFS IN BOTH NOSTRILS
     Route: 045
     Dates: start: 20230612
  7. BISOPROLOL [Concomitant]
     Active Substance: BISOPROLOL\BISOPROLOL FUMARATE
     Dosage: EACH MORNING
     Dates: start: 20230612
  8. CANDESARTAN [Concomitant]
     Active Substance: CANDESARTAN
     Dosage: EACH NIGHT
     Dates: start: 20230612
  9. POLYETHYLENE GLYCOL 3350\POTASSIUM CHLORIDE\SODIUM BICARBONATE\SODIUM [Concomitant]
     Active Substance: POLYETHYLENE GLYCOL 3350\POTASSIUM CHLORIDE\SODIUM BICARBONATE\SODIUM CHLORIDE
     Dosage: SACHET EACH MORNING
     Dates: start: 20230612
  10. OMEPRAZOLE [Concomitant]
     Active Substance: OMEPRAZOLE
     Dates: start: 20230612, end: 20240607
  11. TAMSULOSIN HYDROCHLORIDE [Concomitant]
     Active Substance: TAMSULOSIN HYDROCHLORIDE
     Dosage: EACH MORNING
     Dates: start: 20230612
  12. FUROSEMIDE [Concomitant]
     Active Substance: FUROSEMIDE
     Dosage: EACH MORNING
     Dates: start: 20240426
  13. CLOPIDOGREL [Concomitant]
     Active Substance: CLOPIDOGREL BISULFATE
     Dosage: EACH MORNING
     Dates: start: 20240607
  14. DOCUSATE SODIUM [Concomitant]
     Active Substance: DOCUSATE SODIUM
     Dosage: EACH MORNING
     Dates: start: 20240607
  15. EDOXABAN [Concomitant]
     Active Substance: EDOXABAN
     Dosage: EACH MORNING
     Dates: start: 20240607
  16. NITROGLYCERIN [Concomitant]
     Active Substance: NITROGLYCERIN
     Indication: Angina pectoris
     Dates: start: 20240607
  17. LANSOPRAZOLE [Concomitant]
     Active Substance: LANSOPRAZOLE
     Dosage: EACH MORNING
     Dates: start: 20240607
  18. PRAVASTATIN [Concomitant]
     Active Substance: PRAVASTATIN
     Dosage: AT NIGHT
     Dates: start: 20240624

REACTIONS (3)
  - Dermatitis bullous [Recovered/Resolved]
  - Rash [Unknown]
  - Blister [Unknown]
